FAERS Safety Report 18200638 (Version 3)
Quarter: 2022Q4

REPORT INFORMATION
  Report Type: Spontaneous
  Country: TW (occurrence: None)
  Receive Date: 20200827
  Receipt Date: 20221003
  Transmission Date: 20230113
  Serious: Yes (Other)
  Sender: FDA-Public Use
  Company Number: TW-ROCHE-2660303

PATIENT
  Age: 65 Year
  Sex: Female

DRUGS (2)
  1. POLIVY [Suspect]
     Active Substance: POLATUZUMAB VEDOTIN-PIIQ
     Indication: Diffuse large B-cell lymphoma
     Dosage: POLATUZUMAB VEDOTIN
     Route: 065
     Dates: start: 202002
  2. BENDAMUSTINE [Suspect]
     Active Substance: BENDAMUSTINE
     Indication: Diffuse large B-cell lymphoma
     Route: 065
     Dates: start: 202002

REACTIONS (3)
  - Febrile neutropenia [Unknown]
  - Neuropathy peripheral [Unknown]
  - Secondary immunodeficiency [Unknown]

NARRATIVE: CASE EVENT DATE: 20200201
